FAERS Safety Report 21195999 (Version 7)
Quarter: 2022Q4

REPORT INFORMATION
  Report Type: Report from Study
  Country: US (occurrence: US)
  Receive Date: 20220810
  Receipt Date: 20221129
  Transmission Date: 20230112
  Serious: No
  Sender: FDA-Public Use
  Company Number: US-NOVARTISTESTPH-NVSC2022US180841

PATIENT
  Age: 76 Year
  Sex: Male

DRUGS (6)
  1. TABRECTA [Suspect]
     Active Substance: CAPMATINIB
     Indication: Rash
     Dosage: 200 MG, PRN
     Route: 048
  2. TABRECTA [Suspect]
     Active Substance: CAPMATINIB
     Dosage: UNK UNK, BID
     Route: 048
     Dates: start: 20220711
  3. TABRECTA [Suspect]
     Active Substance: CAPMATINIB
     Dosage: UNK
     Route: 048
  4. TABRECTA [Suspect]
     Active Substance: CAPMATINIB
     Dosage: 600 MG, BID
     Route: 048
     Dates: start: 20220819, end: 20220919
  5. LOSARTAN [Concomitant]
     Active Substance: LOSARTAN
     Indication: Product used for unknown indication
     Dosage: UNK
     Route: 065
  6. METFORMIN [Concomitant]
     Active Substance: METFORMIN HYDROCHLORIDE
     Indication: Product used for unknown indication
     Dosage: UNK
     Route: 065

REACTIONS (13)
  - Flatulence [Unknown]
  - Abdominal distension [Unknown]
  - Skin exfoliation [Unknown]
  - Nausea [Unknown]
  - Cough [Unknown]
  - Peripheral swelling [Recovered/Resolved]
  - Fatigue [Unknown]
  - Rash [Unknown]
  - Back pain [Recovered/Resolved]
  - Rash pruritic [Unknown]
  - Dysphonia [Unknown]
  - Peripheral swelling [Unknown]
  - Scar [Unknown]

NARRATIVE: CASE EVENT DATE: 20220908
